FAERS Safety Report 8149630-4 (Version None)
Quarter: 2012Q1

REPORT INFORMATION
  Report Type: 
  Country: None (occurrence: None)
  Receive Date: 20120218
  Receipt Date: 20111107
  Transmission Date: 20120608
  Serious: No
  Sender: FDA-Public Use
  Company Number: US-ALLERGAN-1114583US

PATIENT
  Age: 42 Year
  Sex: Female
  Weight: 76.19 kg

DRUGS (1)
  1. BOTOX COSMETIC [Suspect]
     Indication: MIGRAINE
     Dosage: 155 UNITS, SINGLE
     Route: 030
     Dates: start: 20111101, end: 20111101

REACTIONS (2)
  - VIITH NERVE PARALYSIS [None]
  - HEADACHE [None]
